FAERS Safety Report 5807263-6 (Version None)
Quarter: 2008Q3

REPORT INFORMATION
  Report Type: 
  Country: None (occurrence: None)
  Receive Date: 20080711
  Receipt Date: 20080709
  Transmission Date: 20090109
  Serious: Yes (Life-Threatening, Hospitalization, Other)
  Sender: FDA-Public Use
  Company Number: CA-ASTRAZENECA-2008UW13395

PATIENT
  Age: 34 Year
  Sex: Female

DRUGS (2)
  1. SEROQUEL XR [Suspect]
     Indication: SCHIZOPHRENIA
     Dosage: 12 GRAMS
     Route: 048
     Dates: start: 20070101
  2. CELEXA [Suspect]
     Dosage: 1 GRAM

REACTIONS (1)
  - OVERDOSE [None]
